FAERS Safety Report 6388294-7 (Version None)
Quarter: 2009Q4

REPORT INFORMATION
  Report Type: 
  Country: None (occurrence: None)
  Receive Date: 20091001
  Receipt Date: 20091001
  Transmission Date: 20100525
  Serious: Yes (Death)
  Sender: FDA-Public Use
  Company Number: None

PATIENT
  Age: 59 Year
  Sex: Male
  Weight: 76.6 kg

DRUGS (1)
  1. PANITUMUMAB [Suspect]
     Indication: RECTAL CANCER
     Dosage: 350MG IV
     Route: 042
     Dates: end: 20090914

REACTIONS (3)
  - BRADYPNOEA [None]
  - HYPERHIDROSIS [None]
  - HYPOTENSION [None]
